FAERS Safety Report 14815158 (Version 1)
Quarter: 2018Q2

REPORT INFORMATION
  Report Type: Spontaneous
  Country: FR (occurrence: FR)
  Receive Date: 20180426
  Receipt Date: 20180426
  Transmission Date: 20180711
  Serious: Yes (Death, Life-Threatening, Hospitalization)
  Sender: FDA-Public Use
  Company Number: FR-PFIZER INC-2018171251

PATIENT
  Age: 64 Year
  Sex: Female
  Weight: 70 kg

DRUGS (9)
  1. TERALITHE [Concomitant]
     Active Substance: LITHIUM CARBONATE
     Dosage: 800 MG, 1X/DAY
     Route: 048
  2. EFFEXOR LP [Suspect]
     Active Substance: VENLAFAXINE HYDROCHLORIDE
     Dosage: 225 MG, 1X/DAY
     Route: 048
  3. TERCIAN [Suspect]
     Active Substance: CYAMEMAZINE
     Dosage: 50 MG, 1X/DAY
     Route: 048
  4. THERALENE 4% [Suspect]
     Active Substance: TRIMEPRAZINE TARTRATE
     Dosage: 15 GTT, 1X/DAY
     Route: 048
  5. NOCTAMIDE [Concomitant]
     Active Substance: LORMETAZEPAM
     Dosage: 2 MG, 1X/DAY
     Route: 048
  6. METFORMIN [Concomitant]
     Active Substance: METFORMIN HYDROCHLORIDE
     Dosage: 1000 MG, 1X/DAY
     Route: 048
  7. IMOVANE [Concomitant]
     Active Substance: ZOPICLONE
     Dosage: 7.5 MG, 1X/DAY
     Route: 048
  8. VALIUM [Suspect]
     Active Substance: DIAZEPAM
     Dosage: 20 MG, 1X/DAY
     Route: 048
  9. SERESTA [Concomitant]
     Active Substance: OXAZEPAM
     Dosage: 100 MG, 1X/DAY
     Route: 048

REACTIONS (6)
  - Coma [Not Recovered/Not Resolved]
  - Cardiac arrest [Recovered/Resolved]
  - Sinus bradycardia [Recovered/Resolved]
  - Hypoxic-ischaemic encephalopathy [Fatal]
  - Suicide attempt [Unknown]
  - Hypotension [Recovered/Resolved]

NARRATIVE: CASE EVENT DATE: 20171228
